FAERS Safety Report 14668107 (Version 1)
Quarter: 2018Q1

REPORT INFORMATION
  Report Type: Spontaneous
  Country: CA (occurrence: CA)
  Receive Date: 20180322
  Receipt Date: 20180322
  Transmission Date: 20180509
  Serious: Yes (Other)
  Sender: FDA-Public Use
  Company Number: CA-BAYER-2018-051566

PATIENT
  Age: 40 Year
  Sex: Female
  Weight: 81.65 kg

DRUGS (2)
  1. MIRENA [Suspect]
     Active Substance: LEVONORGESTREL
     Indication: CONTRACEPTION
     Dosage: 20 MCG/24HR, CONT
     Route: 015
  2. MIRENA [Suspect]
     Active Substance: LEVONORGESTREL

REACTIONS (17)
  - Feeling abnormal [Unknown]
  - Loss of libido [Unknown]
  - Disturbance in attention [Unknown]
  - Restless legs syndrome [Unknown]
  - Ovarian cyst [Unknown]
  - Dizziness [Unknown]
  - Back pain [Unknown]
  - Rash [Unknown]
  - Magnesium deficiency [Unknown]
  - Fatigue [Unknown]
  - Weight increased [Unknown]
  - Alopecia [Unknown]
  - Hypertrichosis [Unknown]
  - Nausea [Unknown]
  - Amnesia [Unknown]
  - Anxiety [Unknown]
  - Abdominal distension [Unknown]
